APPROVED DRUG PRODUCT: FENOFIBRATE
Active Ingredient: FENOFIBRATE
Strength: 160MG
Dosage Form/Route: TABLET;ORAL
Application: A213252 | Product #002
Applicant: ALEMBIC PHARMACEUTICALS LTD
Approved: Jan 17, 2020 | RLD: No | RS: No | Type: DISCN